FAERS Safety Report 9635906 (Version 2)
Quarter: 2013Q4

REPORT INFORMATION
  Report Type: Spontaneous
  Country: US (occurrence: US)
  Receive Date: 20131021
  Receipt Date: 20131021
  Transmission Date: 20140711
  Serious: Yes (Other)
  Sender: FDA-Public Use
  Company Number: US-NAPPMUNDI-USA-2013-0102995

PATIENT
  Age: 64 Year
  Sex: Male
  Weight: 136.5 kg

DRUGS (1)
  1. BUTRANS [Suspect]
     Indication: PAIN
     Dosage: 10 MCG/HR, WEEKLY
     Route: 062
     Dates: start: 20120131, end: 20130722

REACTIONS (2)
  - Hallucination [Recovered/Resolved]
  - Unevaluable event [Unknown]
